FAERS Safety Report 20440291 (Version 1)
Quarter: 2022Q1

REPORT INFORMATION
  Report Type: Report from Study
  Country: CF (occurrence: CF)
  Receive Date: 20220207
  Receipt Date: 20220207
  Transmission Date: 20220424
  Serious: Yes (Death)
  Sender: FDA-Public Use
  Company Number: CF-ViiV Healthcare Limited-FR2022GSK018237

PATIENT
  Age: 1 Day

DRUGS (9)
  1. COTRIMOXAZOLE [Suspect]
     Active Substance: SULFAMETHOXAZOLE\TRIMETHOPRIM
     Indication: Malaria prophylaxis
     Dosage: 160 MG TRIMETHOPRIM,800 MG SULFAMETHOXAZOLE ONCE DAILY
     Route: 064
  2. FERROUS SULFATE ANHYDROUS [Suspect]
     Active Substance: FERROUS SULFATE ANHYDROUS
     Indication: Supplementation therapy
     Dosage: 200 MG, 1D
     Route: 064
  3. FOLIC ACID [Suspect]
     Active Substance: FOLIC ACID
     Indication: Supplementation therapy
     Dosage: 0.4 MG
     Route: 064
  4. LAMIVUDINE [Suspect]
     Active Substance: LAMIVUDINE
     Indication: Antiretroviral therapy
     Dosage: UNK
     Route: 064
  5. LAMIVUDINE [Suspect]
     Active Substance: LAMIVUDINE
     Indication: Prophylaxis against HIV infection
  6. AZT [Suspect]
     Active Substance: ZIDOVUDINE
     Indication: Antiretroviral therapy
     Dosage: UNK
     Route: 064
  7. AZT [Suspect]
     Active Substance: ZIDOVUDINE
     Indication: Prophylaxis against HIV infection
  8. NEVIRAPINE [Suspect]
     Active Substance: NEVIRAPINE
     Indication: Antiretroviral therapy
     Dosage: UNK
     Route: 064
  9. NEVIRAPINE [Suspect]
     Active Substance: NEVIRAPINE
     Indication: Prophylaxis against HIV infection

REACTIONS (2)
  - Death neonatal [Fatal]
  - Foetal exposure during pregnancy [Unknown]
